FAERS Safety Report 7270567-7 (Version None)
Quarter: 2011Q1

REPORT INFORMATION
  Report Type: 
  Country: None (occurrence: None)
  Receive Date: 20110202
  Receipt Date: 20110126
  Transmission Date: 20110831
  Serious: Yes (Life-Threatening, Hospitalization)
  Sender: FDA-Public Use
  Company Number: US-GENENTECH-233178

PATIENT
  Sex: Female
  Weight: 84.353 kg

DRUGS (12)
  1. ALLEGRA D 24 HOUR [Concomitant]
     Indication: HYPERSENSITIVITY
  2. ADVAIR [Concomitant]
     Indication: ASTHMA
  3. CALCIUM [Concomitant]
     Indication: PRODUCT USED FOR UNKNOWN INDICATION
  4. IMMUNOTHERAPY (ANTIGEN UNKNOWN) [Concomitant]
     Indication: HYPERSENSITIVITY
  5. PULMICORT [Concomitant]
     Indication: ASTHMA
  6. SINGULAIR [Concomitant]
     Indication: ASTHMA
  7. ALBUTEROL INHALER [Concomitant]
     Indication: ASTHMA
  8. ASCORBIC ACID [Concomitant]
     Indication: PRODUCT USED FOR UNKNOWN INDICATION
  9. OPTINATE SEPTIMUM [Concomitant]
     Indication: PRODUCT USED FOR UNKNOWN INDICATION
  10. SYMBICORT [Concomitant]
     Indication: ASTHMA
  11. FOLIC ACID [Concomitant]
     Indication: PRODUCT USED FOR UNKNOWN INDICATION
  12. OMALIZUMAB [Suspect]
     Indication: ASTHMA
     Dosage: 375 MG, Q2W
     Dates: start: 20061009, end: 20070213

REACTIONS (2)
  - CERVIX DYSTOCIA [None]
  - DRUG EXPOSURE DURING PREGNANCY [None]
